FAERS Safety Report 8287015-0 (Version None)
Quarter: 2012Q2

REPORT INFORMATION
  Report Type: 
  Country: None (occurrence: None)
  Receive Date: 20120416
  Receipt Date: 20120405
  Transmission Date: 20120825
  Serious: Yes (Life-Threatening, Hospitalization)
  Sender: FDA-Public Use
  Company Number: AT-ROCHE-1051438

PATIENT
  Sex: Female
  Weight: 88 kg

DRUGS (10)
  1. BEVACIZUMAB [Suspect]
     Indication: GLIOBLASTOMA
     Route: 042
     Dates: start: 20111121, end: 20120130
  2. BEVACIZUMAB [Suspect]
     Route: 042
     Dates: start: 20120213, end: 20120307
  3. LEVOFLOXACIN [Concomitant]
     Route: 048
     Dates: start: 20111205, end: 20111211
  4. RISPERDAL [Concomitant]
     Route: 048
     Dates: start: 20111202
  5. DEXAMETHASONE [Concomitant]
     Dosage: FREQUENCY-1,5/1 DAYS
     Dates: start: 20120102
  6. PANTOPRAZOLE SODIUM [Concomitant]
     Route: 048
     Dates: start: 20111118
  7. PASPERTIN [Concomitant]
     Indication: NAUSEA
     Route: 048
     Dates: start: 20120401
  8. TAMSULOSIN HCL [Concomitant]
     Route: 048
  9. DEXAMETHASONE [Concomitant]
     Dates: start: 20111118, end: 20111225
  10. AMPHOTERICIN B [Concomitant]
     Route: 048
     Dates: start: 20111118

REACTIONS (2)
  - LARGE INTESTINE PERFORATION [None]
  - ENTEROBIASIS [None]
